FAERS Safety Report 6310959-3 (Version None)
Quarter: 2009Q3

REPORT INFORMATION
  Report Type: 
  Country: None (occurrence: None)
  Receive Date: 20090817
  Receipt Date: 20090806
  Transmission Date: 20100115
  Serious: Yes (Hospitalization)
  Sender: FDA-Public Use
  Company Number: US-BIOGENIDEC-2009BI020639

PATIENT
  Age: 45 Year
  Sex: Male

DRUGS (7)
  1. TYSABRI [Suspect]
     Indication: MULTIPLE SCLEROSIS
     Route: 042
     Dates: start: 20080930
  2. CYMBALTA [Concomitant]
  3. LYRICA [Concomitant]
  4. OXYCONTIN [Concomitant]
  5. RITALIN LA [Concomitant]
  6. AMBIEN [Concomitant]
  7. MORPHINE [Concomitant]

REACTIONS (9)
  - ABDOMINAL PAIN UPPER [None]
  - BACK PAIN [None]
  - BLOOD GLUCOSE INCREASED [None]
  - BLOOD PRESSURE INCREASED [None]
  - GENERAL SYMPTOM [None]
  - INJECTION SITE PAIN [None]
  - MEMORY IMPAIRMENT [None]
  - MULTIPLE SCLEROSIS RELAPSE [None]
  - PAIN IN EXTREMITY [None]
